FAERS Safety Report 7425708-5 (Version None)
Quarter: 2011Q2

REPORT INFORMATION
  Report Type: 
  Country: None (occurrence: None)
  Receive Date: 20110420
  Receipt Date: 20110407
  Transmission Date: 20111010
  Serious: Yes (Hospitalization, Other)
  Sender: FDA-Public Use
  Company Number: US-ELI_LILLY_AND_COMPANY-US201002002446

PATIENT
  Sex: Female
  Weight: 60.317 kg

DRUGS (17)
  1. ASPIRIN [Concomitant]
     Dosage: UNK
  2. CALCIUM D-500 [Concomitant]
     Dosage: UNK
  3. CRESTOR [Concomitant]
     Dosage: UNK, DAILY (1/D)
     Route: 065
  4. ATENOLOL [Concomitant]
     Indication: HYPERTENSION
     Dosage: UNK, DAILY (1/D)
  5. FOLIC ACID [Concomitant]
     Dosage: UNK, DAILY (1/D)
  6. ARAVA [Concomitant]
     Dosage: 10 MG, UNK
  7. FORTEO [Suspect]
     Dosage: 20 UG, DAILY (1/D)
  8. DIOVAN [Concomitant]
     Indication: HYPERTENSION
     Dosage: UNK, DAILY (1/D)
  9. ASPIRIN [Concomitant]
     Indication: ANTICOAGULANT THERAPY
     Dosage: 325 MG, DAILY (1/D)
  10. PLAVIX [Concomitant]
  11. VITAMIN D [Concomitant]
     Dosage: 4000 U, UNK
  12. FORTEO [Suspect]
     Indication: OSTEOPOROSIS
     Dosage: 20 UG, DAILY (1/D)
     Route: 065
     Dates: start: 20091007, end: 20100203
  13. METHOTREXATE [Concomitant]
  14. SYNTHROID [Concomitant]
  15. FORTEO [Suspect]
     Dosage: 20 UG, DAILY (1/D)
     Route: 065
     Dates: start: 20100205
  16. TYLENOL EXTRA STRENGTH [Concomitant]
     Indication: MUSCULOSKELETAL STIFFNESS
     Dosage: UNK, EACH MORNING
  17. CALCIUM [Concomitant]
     Indication: OSTEOPOROSIS
     Dosage: 1500 U, DAILY (1/D)

REACTIONS (25)
  - THROAT CANCER [None]
  - BLOOD MAGNESIUM DECREASED [None]
  - PAIN IN EXTREMITY [None]
  - ASTHENIA [None]
  - INSOMNIA [None]
  - PARATHYROID DISORDER [None]
  - FATIGUE [None]
  - DYSPHONIA [None]
  - CHEST DISCOMFORT [None]
  - ATRIAL FIBRILLATION [None]
  - TREMOR [None]
  - ERYTHEMA [None]
  - MOBILITY DECREASED [None]
  - BLOOD CALCIUM DECREASED [None]
  - RHEUMATOID ARTHRITIS [None]
  - ABASIA [None]
  - MUSCULOSKELETAL PAIN [None]
  - OROPHARYNGEAL PAIN [None]
  - GOITRE [None]
  - OEDEMA PERIPHERAL [None]
  - WEIGHT DECREASED [None]
  - CORONARY ARTERY OCCLUSION [None]
  - DRUG DOSE OMISSION [None]
  - MUSCULOSKELETAL STIFFNESS [None]
  - THYROID DISORDER [None]
